FAERS Safety Report 6105405-9 (Version None)
Quarter: 2009Q1

REPORT INFORMATION
  Report Type: 
  Country: None (occurrence: None)
  Receive Date: 20090304
  Receipt Date: 20090223
  Transmission Date: 20090719
  Serious: Yes (Death)
  Sender: FDA-Public Use
  Company Number: ROCU20090004

PATIENT
  Age: 78 Year
  Sex: Male

DRUGS (4)
  1. ROCURONIUM BROMIDE [Suspect]
     Indication: DRUG USE FOR UNKNOWN INDICATION
     Dosage: 0.6 MG/KG, 1 IN 1 HR, INTRAVENOUS DRIP
     Route: 041
     Dates: start: 20090213, end: 20090216
  2. NOREPINEPHRINE [Concomitant]
  3. EPINEPHRINE [Concomitant]
  4. VASOPRESSIN [Concomitant]

REACTIONS (5)
  - DRUG INEFFECTIVE [None]
  - HYPOTENSION [None]
  - LOCKED-IN SYNDROME [None]
  - PARALYSIS [None]
  - POST PROCEDURAL COMPLICATION [None]
